FAERS Safety Report 23113091 (Version 2)
Quarter: 2024Q1

REPORT INFORMATION
  Report Type: Spontaneous
  Country: US (occurrence: US)
  Receive Date: 20231027
  Receipt Date: 20240307
  Transmission Date: 20240410
  Serious: Yes (Other)
  Sender: FDA-Public Use
  Company Number: US-BRISTOL-MYERS SQUIBB COMPANY-2023-152267

PATIENT
  Age: 52 Year
  Sex: Female
  Weight: 176.45 kg

DRUGS (1)
  1. POMALYST [Suspect]
     Active Substance: POMALIDOMIDE
     Indication: Plasma cell myeloma
     Dosage: FREQUENCY: DAILY X 21 DAYS ON, 7 OFF
     Route: 048
     Dates: start: 20230923

REACTIONS (2)
  - Abdominal pain upper [Unknown]
  - Localised infection [Unknown]

NARRATIVE: CASE EVENT DATE: 20231021
